FAERS Safety Report 8732496 (Version 2)
Quarter: 2012Q4

REPORT INFORMATION
  Report Type: 
  Country: JP (occurrence: JP)
  Receive Date: 20120820
  Receipt Date: 20120918
  Transmission Date: 20130627
  Serious: Yes (Hospitalization, Other)
  Sender: FDA-Public Use
  Company Number: JP-ROCHE-1100811

PATIENT
  Age: 48 Year
  Sex: Male

DRUGS (5)
  1. AVASTIN [Suspect]
     Indication: NON-SMALL CELL LUNG CANCER METASTATIC
     Route: 041
     Dates: start: 20110705, end: 2012
  2. AVASTIN [Suspect]
     Indication: NON-SMALL CELL LUNG CANCER METASTATIC
     Route: 041
     Dates: start: 201206
  3. TS-1 [Concomitant]
     Indication: NON-SMALL CELL LUNG CANCER METASTATIC
     Dosage: Dosage is uncertain.
     Route: 048
     Dates: end: 2012
  4. TS-1 [Concomitant]
     Indication: NON-SMALL CELL LUNG CANCER METASTATIC
     Dosage: Dosage is uncertain.
     Route: 048
     Dates: start: 2012
  5. ASPIRIN [Concomitant]
     Dosage: Dosage is uncertain.
     Route: 065

REACTIONS (2)
  - Bronchopulmonary aspergillosis [Recovered/Resolved]
  - Septic shock [Recovered/Resolved]
